FAERS Safety Report 7081631-X (Version None)
Quarter: 2010Q4

REPORT INFORMATION
  Report Type: 
  Country: None (occurrence: None)
  Receive Date: 20101103
  Receipt Date: 20101026
  Transmission Date: 20110411
  Serious: Yes (Hospitalization, Other)
  Sender: FDA-Public Use
  Company Number: PHHY2010US70890

PATIENT
  Sex: Female
  Weight: 84.5 kg

DRUGS (3)
  1. EXJADE [Suspect]
     Dosage: 1750 MG, UNK
     Route: 048
     Dates: start: 20101011, end: 20101020
  2. HYDROCODONE [Concomitant]
     Dosage: UNK
  3. LORAZEPAM [Concomitant]
     Dosage: UNK

REACTIONS (2)
  - ABDOMINAL PAIN [None]
  - MUSCULAR WEAKNESS [None]
